FAERS Safety Report 7939173-2 (Version None)
Quarter: 2011Q4

REPORT INFORMATION
  Report Type: 
  Country: None (occurrence: None)
  Receive Date: 20111124
  Receipt Date: 20111121
  Transmission Date: 20120403
  Serious: No
  Sender: FDA-Public Use
  Company Number: US-PFIZER INC-2011285651

PATIENT
  Sex: Female

DRUGS (4)
  1. PREMPRO [Suspect]
     Indication: LIBIDO DECREASED
  2. PREMPHASE (PREMARIN;CYCRIN 14/14) [Suspect]
     Indication: OFF LABEL USE
     Dosage: UNK
     Dates: start: 20110701, end: 20111107
  3. PREMPRO [Suspect]
     Indication: OFF LABEL USE
     Dosage: UNK
     Dates: start: 20110701, end: 20111107
  4. PREMPHASE (PREMARIN;CYCRIN 14/14) [Suspect]
     Indication: LIBIDO DECREASED

REACTIONS (1)
  - DRUG INEFFECTIVE FOR UNAPPROVED INDICATION [None]
